FAERS Safety Report 7411826-4 (Version None)
Quarter: 2011Q2

REPORT INFORMATION
  Report Type: 
  Country: None (occurrence: None)
  Receive Date: 20110413
  Receipt Date: 20110404
  Transmission Date: 20111010
  Serious: Yes (Hospitalization)
  Sender: FDA-Public Use
  Company Number: FR-B.I. PHARMACEUTICALS,INC./RIDGEFIELD-2011-DE-02320BY

PATIENT
  Age: 72 Year
  Sex: Female

DRUGS (7)
  1. APROVEL [Suspect]
     Indication: HYPERTENSION
     Dosage: 1 ANZ
     Route: 048
     Dates: start: 20101101, end: 20110112
  2. CRESTOR [Concomitant]
  3. TRIATEC [Suspect]
     Indication: HYPERTENSION
     Dosage: 1 ANZ
     Route: 048
     Dates: start: 20100401, end: 20100601
  4. TELMISARTAN [Suspect]
     Indication: HYPERTENSION
     Dosage: 1 ANZ
     Route: 048
     Dates: start: 20100601, end: 20100901
  5. KARDEGIC [Concomitant]
  6. UNCODEABLE ^UNCLASSIFIABLE^ [Concomitant]
  7. CARDENSIEL [Concomitant]

REACTIONS (2)
  - DYSGEUSIA [None]
  - WEIGHT DECREASED [None]
